FAERS Safety Report 12835707 (Version 2)
Quarter: 2016Q4

REPORT INFORMATION
  Report Type: Spontaneous
  Country: JP (occurrence: JP)
  Receive Date: 20161011
  Receipt Date: 20161122
  Transmission Date: 20170207
  Serious: Yes (Hospitalization)
  Sender: FDA-Public Use
  Company Number: JP-SA-2016SA185501

PATIENT
  Age: 60 Year
  Sex: Male

DRUGS (2)
  1. BCG FOR IMMUNOTHERAPY [Suspect]
     Active Substance: BACILLUS CALMETTE-GUERIN ANTIGEN, UNSPECIFIED SUBSTRAIN
     Indication: BLADDER CANCER
     Route: 043
  2. IMMUNOBLADDER [Suspect]
     Active Substance: BACILLUS CALMETTE-GUERIN ANTIGEN, UNSPECIFIED SUBSTRAIN
     Indication: BLADDER CANCER
     Route: 043

REACTIONS (9)
  - Vomiting [Unknown]
  - Hepatic failure [Unknown]
  - Disseminated intravascular coagulation [Unknown]
  - Jaundice [Unknown]
  - Anuria [Unknown]
  - Pyrexia [Unknown]
  - Septic shock [Unknown]
  - Disseminated Bacillus Calmette-Guerin infection [Unknown]
  - Renal failure [Unknown]
